FAERS Safety Report 14807004 (Version 1)
Quarter: 2018Q2

REPORT INFORMATION
  Report Type: Spontaneous
  Country: US (occurrence: US)
  Receive Date: 20180425
  Receipt Date: 20180425
  Transmission Date: 20180711
  Serious: No
  Sender: FDA-Public Use
  Company Number: US-ROCHE-2090697

PATIENT
  Age: 58 Year
  Sex: Male
  Weight: 72.64 kg

DRUGS (3)
  1. AMLODIPINE BESILATE [Concomitant]
     Active Substance: AMLODIPINE BESYLATE
     Indication: HYPERTENSION
     Dosage: YES
     Route: 065
     Dates: start: 2015
  2. BACFLOCIN [Concomitant]
     Dosage: ONGOING: YES
     Route: 065
     Dates: start: 2015
  3. OCREVUS [Suspect]
     Active Substance: OCRELIZUMAB
     Indication: MULTIPLE SCLEROSIS
     Dosage: FIRST INFUSION WAS SPLIT INTO TWO PARTS
     Route: 065
     Dates: start: 201802

REACTIONS (1)
  - Psoriasis [Not Recovered/Not Resolved]

NARRATIVE: CASE EVENT DATE: 201802
